FAERS Safety Report 10464116 (Version 2)
Quarter: 2014Q3

REPORT INFORMATION
  Report Type: Spontaneous
  Country: US (occurrence: US)
  Receive Date: 20140919
  Receipt Date: 20140919
  Transmission Date: 20150326
  Serious: Yes (Death)
  Sender: FDA-Public Use
  Company Number: US-ELI_LILLY_AND_COMPANY-US201404006370

PATIENT
  Age: 69 Year
  Sex: Male

DRUGS (2)
  1. CYMBALTA [Suspect]
     Active Substance: DULOXETINE HYDROCHLORIDE
     Indication: STRESS AT WORK
     Dosage: 30 MG, UNKNOWN
     Route: 065
     Dates: start: 20120418, end: 20120419
  2. CYMBALTA [Suspect]
     Active Substance: DULOXETINE HYDROCHLORIDE
     Dosage: 60 MG, QD
     Route: 065
     Dates: start: 20120420

REACTIONS (3)
  - Activation syndrome [Unknown]
  - Completed suicide [Fatal]
  - Agitation [Unknown]

NARRATIVE: CASE EVENT DATE: 20120421
